FAERS Safety Report 5623830-7 (Version None)
Quarter: 2008Q1

REPORT INFORMATION
  Report Type: 
  Country: None (occurrence: None)
  Receive Date: 20080207
  Receipt Date: 20080124
  Transmission Date: 20080703
  Serious: Yes (Other)
  Sender: FDA-Public Use
  Company Number: DE-1165019

PATIENT
  Age: 71 Year
  Sex: Male

DRUGS (1)
  1. TRAVATAN [Suspect]
     Indication: GLAUCOMA
     Dosage: QD OPHTHALMIC
     Route: 047
     Dates: start: 20070701, end: 20080101

REACTIONS (1)
  - GASTRIC HAEMORRHAGE [None]
